FAERS Safety Report 21471678 (Version 1)
Quarter: 2022Q4

REPORT INFORMATION
  Report Type: Spontaneous
  Country: AR (occurrence: AR)
  Receive Date: 20221018
  Receipt Date: 20221018
  Transmission Date: 20230113
  Serious: Yes (Other)
  Sender: FDA-Public Use
  Company Number: AR-PFIZER INC-202101850582

PATIENT
  Age: 69 Year
  Sex: Female

DRUGS (1)
  1. XELJANZ [Suspect]
     Active Substance: TOFACITINIB CITRATE
     Indication: Rheumatoid arthritis
     Dosage: 5 MG, 2X/DAY
     Dates: start: 20150301

REACTIONS (5)
  - Neoplasm malignant [Unknown]
  - Urinary tract infection [Unknown]
  - Therapeutic product effect incomplete [Unknown]
  - Uterine neoplasm [Not Recovered/Not Resolved]
  - COVID-19 [Not Recovered/Not Resolved]
